FAERS Safety Report 6595979-6 (Version None)
Quarter: 2010Q1

REPORT INFORMATION
  Report Type: 
  Country: None (occurrence: None)
  Receive Date: 20100223
  Receipt Date: 20100211
  Transmission Date: 20100710
  Serious: Yes (Other)
  Sender: FDA-Public Use
  Company Number: PHHY2010NL08178

PATIENT
  Sex: Female

DRUGS (9)
  1. METHYLPHENIDATE [Suspect]
     Dosage: 4DD 15 MG
  2. METHYLPHENIDATE [Suspect]
     Dosage: 3DD 1 TABLET
     Dates: start: 20091104
  3. FLUOXETINE [Suspect]
     Dosage: 1 DD 10 MG
     Dates: start: 20091208
  4. FLUOXETINE [Suspect]
     Dosage: 1 DD 20 MG
     Dates: start: 20100111
  5. FLUOXETINE [Suspect]
     Dosage: UNK
  6. RISPERDAL [Suspect]
     Dosage: 1 DD 0.5 TABLET
  7. RISPERDAL [Suspect]
     Dosage: 1 DD 1 TABLET
     Dates: start: 20090902
  8. RISPERDAL [Suspect]
     Dosage: 1 DD 0.5 MG
     Dates: start: 20091104
  9. MELATONIN [Concomitant]
     Dosage: 1 DD 5 MG
     Dates: end: 20090815

REACTIONS (3)
  - EPISTAXIS [None]
  - GROWTH RETARDATION [None]
  - MADAROSIS [None]
